FAERS Safety Report 12724823 (Version 1)
Quarter: 2016Q3

REPORT INFORMATION
  Report Type: Spontaneous
  Country: US (occurrence: US)
  Receive Date: 20160908
  Receipt Date: 20160908
  Transmission Date: 20161109
  Serious: Yes (Hospitalization, Other)
  Sender: FDA-Public Use
  Company Number: US-GLAXOSMITHKLINE-US2016GSK129761

PATIENT
  Age: 18 Year
  Sex: Male

DRUGS (1)
  1. LAMICTAL XR [Suspect]
     Active Substance: LAMOTRIGINE
     Indication: EPILEPSY
     Dosage: 300 MG, U
     Dates: start: 20131224

REACTIONS (2)
  - Seizure [Unknown]
  - Knee operation [Unknown]

NARRATIVE: CASE EVENT DATE: 2013
